FAERS Safety Report 25256655 (Version 1)
Quarter: 2025Q2

REPORT INFORMATION
  Report Type: Spontaneous
  Country: IT (occurrence: None)
  Receive Date: 20250430
  Receipt Date: 20250430
  Transmission Date: 20250716
  Serious: Yes (Life-Threatening, Hospitalization)
  Sender: INFORLIFE
  Company Number: IT-INFO-20250100

PATIENT
  Age: 62 Year
  Sex: Female

DRUGS (4)
  1. VERAPAMIL [Interacting]
     Active Substance: VERAPAMIL HYDROCHLORIDE
  2. FLUCONAZOLE [Interacting]
     Active Substance: FLUCONAZOLE
  3. RAMIPRIL / HYDROCHLOROTHIAZIDE [Concomitant]
  4. ROSUVASTATIN [Concomitant]
     Active Substance: ROSUVASTATIN

REACTIONS (3)
  - Drug interaction [Recovered/Resolved]
  - Hypokalaemia [Recovered/Resolved]
  - Electrolyte imbalance [Recovered/Resolved]
